FAERS Safety Report 21009612 (Version 2)
Quarter: 2022Q3

REPORT INFORMATION
  Report Type: Spontaneous
  Country: CH (occurrence: CH)
  Receive Date: 20220627
  Receipt Date: 20220707
  Transmission Date: 20221027
  Serious: Yes (Other)
  Sender: FDA-Public Use
  Company Number: CH-GlaxoSmithKline-CH2022EME095951

PATIENT

DRUGS (14)
  1. COMBIVIR [Suspect]
     Active Substance: LAMIVUDINE\ZIDOVUDINE
     Indication: HIV infection CDC category B
     Dosage: UNK
     Dates: start: 2022
  2. COMBIVIR [Suspect]
     Active Substance: LAMIVUDINE\ZIDOVUDINE
     Indication: HIV infection CDC category C
  3. VALTREX [Suspect]
     Active Substance: VALACYCLOVIR HYDROCHLORIDE
     Indication: Product used for unknown indication
     Dosage: UNK
     Dates: start: 2022
  4. CEFEPIME [Suspect]
     Active Substance: CEFEPIME HYDROCHLORIDE
     Indication: Product used for unknown indication
     Dosage: UNK 3 DAYS FOLLOWED BY CO-AMOXICILLIN FOR 4 DAYS
     Dates: start: 2022
  5. VELCADE [Suspect]
     Active Substance: BORTEZOMIB
     Indication: Chemotherapy
     Dosage: UNK
     Dates: start: 2022
  6. CYCLOPHOSPHAMIDE\DOXORUBICIN\PREDNISONE\VINCRISTINE [Suspect]
     Active Substance: CYCLOPHOSPHAMIDE\DOXORUBICIN\PREDNISONE\VINCRISTINE
     Indication: Chemotherapy
     Dosage: UNK
     Dates: start: 2022
  7. DARUNAVIR\RITONAVIR [Suspect]
     Active Substance: DARUNAVIR\RITONAVIR
     Indication: HIV infection CDC category B
     Dosage: 600 MG, BID
     Dates: start: 2022
  8. DARUNAVIR\RITONAVIR [Suspect]
     Active Substance: DARUNAVIR\RITONAVIR
     Indication: HIV infection CDC category C
  9. RALTEGRAVIR [Suspect]
     Active Substance: RALTEGRAVIR
     Indication: HIV infection CDC category B
     Dosage: 400 MG, BID
     Dates: start: 2022
  10. RALTEGRAVIR [Suspect]
     Active Substance: RALTEGRAVIR
     Indication: HIV infection CDC category C
  11. BACTRIM [Suspect]
     Active Substance: SULFAMETHOXAZOLE\TRIMETHOPRIM
     Indication: Product used for unknown indication
     Dosage: UNK
     Dates: start: 2022
  12. ARTEMETHER\LUMEFANTRINE [Suspect]
     Active Substance: ARTEMETHER\LUMEFANTRINE
     Indication: Product used for unknown indication
     Dosage: UNK FOR 5 DAYS
     Dates: start: 2022
  13. AMOXICILLIN\CLAVULANATE POTASSIUM [Suspect]
     Active Substance: AMOXICILLIN\CLAVULANATE POTASSIUM
     Indication: Product used for unknown indication
     Dosage: UNK FOR 4 DAYS
     Dates: start: 2022
  14. TENOFOVIR [Suspect]
     Active Substance: TENOFOVIR
     Indication: Antiviral prophylaxis
     Dosage: UNK UNK, QD
     Dates: start: 2022

REACTIONS (14)
  - Pancytopenia [Unknown]
  - Haptoglobin decreased [Unknown]
  - Corneal opacity [Unknown]
  - Plasmablastic lymphoma [Unknown]
  - Exophthalmos [Unknown]
  - Malaria [Unknown]
  - Hepatitis B [Unknown]
  - Blister [Unknown]
  - Papilloma [Unknown]
  - Keratopathy [Unknown]
  - COVID-19 [Unknown]
  - Pyrexia [Unknown]
  - Aplasia [Unknown]
  - Toxicity to various agents [Unknown]

NARRATIVE: CASE EVENT DATE: 20220101
